FAERS Safety Report 4689102-2 (Version None)
Quarter: 2005Q2

REPORT INFORMATION
  Report Type: 
  Country: None (occurrence: None)
  Receive Date: 20050608
  Receipt Date: 20050314
  Transmission Date: 20051028
  Serious: No
  Sender: FDA-Public Use
  Company Number: 2005-BP-04398BP

PATIENT
  Age: 79 Year
  Sex: Female

DRUGS (10)
  1. SPIRIVA [Suspect]
     Indication: CHRONIC OBSTRUCTIVE PULMONARY DISEASE
     Dosage: 18 MCG (18 MCG, 2 CAPSULES/2 INHALATIONS), IH
     Route: 055
     Dates: start: 20050118
  2. NORVASC [Concomitant]
  3. AVANDIA [Concomitant]
  4. FUROSEMIDE [Concomitant]
  5. QUINAPRIL HCL [Concomitant]
  6. FOLIC ACID [Concomitant]
  7. ASPIRIN [Concomitant]
  8. MINIPRESS [Concomitant]
  9. LESCOL XL [Concomitant]
  10. STARLIX [Concomitant]

REACTIONS (1)
  - AGEUSIA [None]
